FAERS Safety Report 6690916-8 (Version None)
Quarter: 2010Q2

REPORT INFORMATION
  Report Type: 
  Country: None (occurrence: None)
  Receive Date: 20100421
  Receipt Date: 20100415
  Transmission Date: 20101027
  Serious: Yes (Other)
  Sender: FDA-Public Use
  Company Number: KR-ROCHE-685790

PATIENT
  Sex: Female

DRUGS (13)
  1. TOCILIZUMAB [Suspect]
     Indication: RHEUMATOID ARTHRITIS
     Route: 041
     Dates: start: 20100317, end: 20100317
  2. BLINDED TOCILIZUMAB [Suspect]
     Indication: RHEUMATOID ARTHRITIS
     Route: 042
     Dates: start: 20091222, end: 20100217
  3. METHOTREXATE [Concomitant]
     Route: 048
     Dates: start: 20071112
  4. PREDNISOLONE [Concomitant]
     Route: 048
     Dates: start: 20090923
  5. UNKNOWN TABLET [Concomitant]
     Dosage: DRUG:UNKNOWN DRUG
     Route: 048
     Dates: start: 20070920
  6. UNKNOWN TABLET [Concomitant]
     Dosage: DRUG:UNKNOWN DRUG
     Route: 048
     Dates: start: 20071112
  7. UNKNOWN TABLET [Concomitant]
     Route: 048
     Dates: start: 20070930
  8. UNKNOWN TABLET [Concomitant]
     Route: 048
     Dates: start: 20070926
  9. UNKNOWN TABLET [Concomitant]
     Route: 048
     Dates: start: 20031212
  10. FAMOTIDINE [Concomitant]
     Route: 048
     Dates: start: 20071112, end: 20100124
  11. UNKNOWN TABLET [Concomitant]
     Dosage: DRUG: UNKNOWN DRUG
     Route: 048
     Dates: start: 20070923
  12. ISONIAZID [Concomitant]
     Route: 048
     Dates: start: 20071127
  13. UNKNOWN TABLET [Concomitant]
     Route: 048
     Dates: start: 20091127

REACTIONS (3)
  - ALANINE AMINOTRANSFERASE INCREASED [None]
  - ASPARTATE AMINOTRANSFERASE INCREASED [None]
  - TENDON RUPTURE [None]
